FAERS Safety Report 16060482 (Version 2)
Quarter: 2019Q2

REPORT INFORMATION
  Report Type: Spontaneous
  Country: US (occurrence: US)
  Receive Date: 20190312
  Receipt Date: 20190417
  Transmission Date: 20190711
  Serious: No
  Sender: FDA-Public Use
  Company Number: US-TEVA-2019-US-1024234

PATIENT
  Sex: Male

DRUGS (1)
  1. HYDROCODONE/APAP TABLET ACTAVIS [Suspect]
     Active Substance: ACETAMINOPHEN\HYDROCODONE
     Dosage: FORM STRENGTH: 10/325MG
     Route: 065

REACTIONS (1)
  - No adverse event [Unknown]
